FAERS Safety Report 9745566 (Version 1)
Quarter: 2013Q4

REPORT INFORMATION
  Report Type: Spontaneous
  Country: US (occurrence: None)
  Receive Date: 20131204
  Receipt Date: 20131204
  Transmission Date: 20140711
  Serious: Yes (Death)
  Sender: FDA-Public Use
  Company Number: US-ALKEM-000417

PATIENT
  Age: 55 Year
  Sex: Male

DRUGS (8)
  1. GABAPENTIN (GABAPENTIN) [Suspect]
     Route: 048
  2. AMITRIPTYLINE (AMITRIPTYLINE) [Suspect]
     Route: 048
  3. MODAFINIL (MODAFINIL) [Suspect]
     Route: 048
  4. TAMSULOSIN (TAMSULOSIN) [Suspect]
     Route: 048
  5. TIZANIDINE (TIZANIDINE) [Suspect]
     Route: 048
  6. CLONAZEPAM (CLONAZEPAM) (CLONAZEPAM) [Suspect]
     Route: 048
  7. NATALIZUMAB (NATALIZUMAB) [Suspect]
     Route: 048
  8. ATORVASTATIN (ATORVASTATIN) [Suspect]

REACTIONS (2)
  - Exposure via ingestion [None]
  - Completed suicide [None]
